FAERS Safety Report 5855092-X (Version None)
Quarter: 2008Q3

REPORT INFORMATION
  Report Type: 
  Country: None (occurrence: None)
  Receive Date: 20080822
  Receipt Date: 20080707
  Transmission Date: 20090109
  Serious: No
  Sender: FDA-Public Use
  Company Number: US-ABBOTT-08P-163-0461572-00

PATIENT
  Sex: Female
  Weight: 49.94 kg

DRUGS (2)
  1. SYNTHROID [Suspect]
     Indication: HYPOTHYROIDISM
     Dosage: ONE ORALLY PER DAY
     Route: 048
     Dates: start: 20071123, end: 20080401
  2. NAPROXEN SODIUM [Concomitant]
     Indication: PAIN
     Route: 048

REACTIONS (10)
  - ARTHRALGIA [None]
  - ARTHROPATHY [None]
  - DIZZINESS [None]
  - GAIT DISTURBANCE [None]
  - HEADACHE [None]
  - HYPERHIDROSIS [None]
  - MIGRAINE [None]
  - MUSCULAR WEAKNESS [None]
  - MUSCULOSKELETAL PAIN [None]
  - NAUSEA [None]
